FAERS Safety Report 18199609 (Version 2)
Quarter: 2020Q4

REPORT INFORMATION
  Report Type: Spontaneous
  Country: US (occurrence: US)
  Receive Date: 20200826
  Receipt Date: 20201007
  Transmission Date: 20210113
  Serious: Yes (Hospitalization)
  Sender: FDA-Public Use
  Company Number: US-INTRA-CELLULAR THERAPIES, INC.-2020ICT00088

PATIENT
  Age: 40 Year
  Sex: Male

DRUGS (4)
  1. COGENTIN [Concomitant]
     Active Substance: BENZTROPINE MESYLATE
     Dosage: 1 TABLETS, 2X/DAY
  2. ZYPREXA [Concomitant]
     Active Substance: OLANZAPINE
     Dosage: 1 TABLETS, 2X/DAY
  3. HYDROXYZINE HCL [Concomitant]
     Active Substance: HYDROXYZINE HYDROCHLORIDE
     Dosage: 1 TABLETS, 3X/DAY
  4. CAPLYTA [Suspect]
     Active Substance: LUMATEPERONE
     Dosage: 42 MG, 1X/DAY IN THE AM
     Route: 048
     Dates: start: 20200728

REACTIONS (1)
  - Schizoaffective disorder bipolar type [Unknown]

NARRATIVE: CASE EVENT DATE: 20200807
